FAERS Safety Report 8254642-6 (Version None)
Quarter: 2012Q1

REPORT INFORMATION
  Report Type: 
  Country: None (occurrence: None)
  Receive Date: 20120329
  Receipt Date: 20110504
  Transmission Date: 20120608
  Serious: No
  Sender: FDA-Public Use
  Company Number: 2011P1006289

PATIENT
  Age: 62 Year
  Sex: Female
  Weight: 117.9352 kg

DRUGS (8)
  1. HYDROCHLOROTHIAZIDE [Concomitant]
  2. GLIMEPIRIDE [Concomitant]
  3. NYSTATIN [Suspect]
     Indication: SEBORRHOEA
     Dosage: X1; TOP
     Route: 061
     Dates: start: 20100801, end: 20100801
  4. NYSTATIN [Suspect]
     Indication: ERYTHEMA
     Dosage: X1; TOP
     Route: 061
     Dates: start: 20100801, end: 20100801
  5. NYSTATIN [Suspect]
     Indication: PAROSMIA
     Dosage: X1; TOP
     Route: 061
     Dates: start: 20100801, end: 20100801
  6. LISINOPRIL [Concomitant]
  7. COUMADIN [Concomitant]
  8. AMLODIPINE [Concomitant]

REACTIONS (2)
  - PRODUCT QUALITY ISSUE [None]
  - DYSGEUSIA [None]
